FAERS Safety Report 15609339 (Version 1)
Quarter: 2018Q4

REPORT INFORMATION
  Report Type: Spontaneous
  Country: NL (occurrence: NL)
  Receive Date: 20181112
  Receipt Date: 20181112
  Transmission Date: 20190205
  Serious: Yes (Other)
  Sender: FDA-Public Use
  Company Number: NL-MYLANLABS-2018M1078856

PATIENT
  Age: 41 Year
  Sex: Female
  Weight: 71 kg

DRUGS (2)
  1. MEZAVANT [Concomitant]
     Active Substance: MESALAMINE
     Indication: PRODUCT USED FOR UNKNOWN INDICATION
     Dosage: UNK
  2. ANASTROZOLE. [Suspect]
     Active Substance: ANASTROZOLE
     Indication: HORMONE SUPPRESSION THERAPY
     Dosage: UNK UNK,QD,  (1DD)
     Dates: start: 20150402

REACTIONS (3)
  - Colitis ulcerative [Not Recovered/Not Resolved]
  - Gastrointestinal inflammation [Not Recovered/Not Resolved]
  - Therapeutic response unexpected [Not Recovered/Not Resolved]

NARRATIVE: CASE EVENT DATE: 20150402
